FAERS Safety Report 6292750-X (Version None)
Quarter: 2009Q3

REPORT INFORMATION
  Report Type: 
  Country: None (occurrence: None)
  Receive Date: 20090731
  Receipt Date: 20090724
  Transmission Date: 20100115
  Serious: Yes (Hospitalization)
  Sender: FDA-Public Use
  Company Number: B0573533A

PATIENT
  Sex: Female

DRUGS (6)
  1. LAMICTAL [Suspect]
     Indication: EPILEPSY
     Dosage: 25MG PER DAY
     Route: 048
     Dates: start: 20090424, end: 20090508
  2. ALEVIATIN [Suspect]
     Indication: EPILEPSY
     Dosage: 100MG TWICE PER DAY
     Route: 048
  3. MYSTAN [Suspect]
     Indication: EPILEPSY
     Dosage: 10MG THREE TIMES PER DAY
     Route: 048
  4. DEPAKENE [Suspect]
     Indication: EPILEPSY
     Route: 048
  5. EXCEGRAN [Suspect]
     Indication: EPILEPSY
     Dosage: 200MG TWICE PER DAY
     Route: 048
  6. HYDANTOL [Suspect]
     Indication: EPILEPSY
     Dosage: 25MG TWICE PER DAY
     Route: 048

REACTIONS (6)
  - CONJUNCTIVAL HYPERAEMIA [None]
  - ERYTHEMA MULTIFORME [None]
  - EYE PAIN [None]
  - HYPERAEMIA [None]
  - PYREXIA [None]
  - RASH GENERALISED [None]
